FAERS Safety Report 16038879 (Version 1)
Quarter: 2019Q1

REPORT INFORMATION
  Report Type: Spontaneous
  Country: ES (occurrence: ES)
  Receive Date: 20190306
  Receipt Date: 20190306
  Transmission Date: 20190418
  Serious: Yes (Other)
  Sender: FDA-Public Use
  Company Number: PHHY2019ES047762

PATIENT
  Age: 15 Year
  Sex: Female

DRUGS (1)
  1. IBUPROFENO [Suspect]
     Active Substance: IBUPROFEN
     Indication: DYSMENORRHOEA
     Dosage: UNK
     Route: 065
     Dates: start: 20190117, end: 20190117

REACTIONS (3)
  - Dysphagia [Recovering/Resolving]
  - Lip oedema [Recovering/Resolving]
  - Face oedema [Recovering/Resolving]

NARRATIVE: CASE EVENT DATE: 20190117
